FAERS Safety Report 13341130 (Version 3)
Quarter: 2017Q2

REPORT INFORMATION
  Report Type: Report from Study
  Country: US (occurrence: US)
  Receive Date: 20170316
  Receipt Date: 20170621
  Transmission Date: 20170830
  Serious: Yes (Other)
  Sender: FDA-Public Use
  Company Number: US-PFIZER INC-2017054626

PATIENT
  Age: 67 Year
  Sex: Female

DRUGS (1)
  1. IBRANCE [Suspect]
     Active Substance: PALBOCICLIB
     Indication: BREAST CANCER
     Dosage: 125 MG, DAILY
     Route: 048
     Dates: start: 20170127, end: 20170602

REACTIONS (12)
  - Contusion [Unknown]
  - Diarrhoea [Not Recovered/Not Resolved]
  - Dehydration [Unknown]
  - Psoriasis [Unknown]
  - Asthenia [Unknown]
  - Vitamin B12 decreased [Unknown]
  - Condition aggravated [Unknown]
  - Blood potassium decreased [Unknown]
  - Epistaxis [Unknown]
  - Decreased appetite [Unknown]
  - Weight decreased [Unknown]
  - Hot flush [Unknown]

NARRATIVE: CASE EVENT DATE: 2017
